FAERS Safety Report 4704678-4 (Version None)
Quarter: 2005Q2

REPORT INFORMATION
  Report Type: 
  Country: None (occurrence: None)
  Receive Date: 20050629
  Receipt Date: 20050616
  Transmission Date: 20051028
  Serious: Yes (Life-Threatening, Hospitalization)
  Sender: FDA-Public Use
  Company Number: 215356

PATIENT
  Age: 62 Year
  Sex: Female

DRUGS (14)
  1. HERCEPTIN [Suspect]
     Indication: BREAST CANCER
     Dosage: SEE IMAGE
     Route: 042
     Dates: start: 20020813, end: 20020813
  2. HERCEPTIN [Suspect]
     Indication: BREAST CANCER
     Dosage: SEE IMAGE
     Route: 042
     Dates: end: 20030813
  3. HERCEPTIN [Suspect]
     Indication: BREAST CANCER
     Dosage: SEE IMAGE
     Route: 042
     Dates: start: 20020819
  4. TAXOTERE [Suspect]
     Indication: BREAST CANCER
     Dosage: 195 MG, Q3W, INTRAVENOUS
     Route: 042
     Dates: start: 20020814, end: 20021016
  5. DOXORUBICIN HYDROCHLORIDE [Suspect]
     Indication: BREAST CANCER
     Dosage: 115 MG, ITNRAVENOUS
     Route: 042
     Dates: start: 20020506, end: 20020715
  6. CYTOXAN [Suspect]
     Indication: BREAST CANCER
     Dosage: 1150 MG, INTRAVENOUS
     Route: 042
     Dates: start: 20020506, end: 20020715
  7. DIAPREL (GLICLAZIDE) [Concomitant]
  8. ATENOLOL [Concomitant]
  9. RAMIPRIL [Concomitant]
  10. ZANTAC [Concomitant]
  11. NITRODERM [Concomitant]
  12. BETALOC (METOPROPOL TARTRATE) [Concomitant]
  13. XANAX [Concomitant]
  14. SORTIS (ATORVASATIN CALCIUM) [Concomitant]

REACTIONS (3)
  - ACUTE MYOCARDIAL INFARCTION [None]
  - HYPOTENSION [None]
  - PALLOR [None]
